FAERS Safety Report 23510030 (Version 1)
Quarter: 2024Q1

REPORT INFORMATION
  Report Type: Spontaneous
  Country: US (occurrence: US)
  Receive Date: 20240211
  Receipt Date: 20240211
  Transmission Date: 20240410
  Serious: Yes (Death, Life-Threatening, Hospitalization, Other)
  Sender: FDA-Public Use
  Company Number: US-JNJFOC-20240221302

PATIENT
  Age: 69 Year
  Sex: Female
  Weight: 89 kg

DRUGS (8)
  1. XARELTO [Suspect]
     Active Substance: RIVAROXABAN
     Indication: Product used for unknown indication
     Route: 048
     Dates: start: 20220413
  2. HYDROXYZINE PAMOATE [Concomitant]
     Active Substance: HYDROXYZINE PAMOATE
     Dates: start: 20220408
  3. ALBUTEROL [Concomitant]
     Active Substance: ALBUTEROL
     Dates: start: 20211129
  4. DULOXETINE [Concomitant]
     Active Substance: DULOXETINE
     Dates: start: 20210511
  5. AMLODIPINE [Concomitant]
     Active Substance: AMLODIPINE BESYLATE
     Dates: start: 20220413
  6. FUROSEMIDE [Concomitant]
     Active Substance: FUROSEMIDE
     Dates: start: 20220413
  7. MELATONIN [Concomitant]
     Active Substance: MELATONIN
     Dates: start: 20161102
  8. PANTOPRAZOLE [Concomitant]
     Active Substance: PANTOPRAZOLE
     Dates: start: 20220413

REACTIONS (8)
  - Shock haemorrhagic [Fatal]
  - Gastrointestinal haemorrhage [Fatal]
  - Cardiogenic shock [Not Recovered/Not Resolved]
  - Acute myocardial infarction [Unknown]
  - Deep vein thrombosis [Unknown]
  - Cardiac failure acute [Unknown]
  - Cardiac ventricular thrombosis [Not Recovered/Not Resolved]
  - Haemoptysis [Unknown]

NARRATIVE: CASE EVENT DATE: 20220512
